FAERS Safety Report 6070118-9 (Version None)
Quarter: 2009Q1

REPORT INFORMATION
  Report Type: 
  Country: None (occurrence: None)
  Receive Date: 20090209
  Receipt Date: 20090108
  Transmission Date: 20090719
  Serious: No
  Sender: FDA-Public Use
  Company Number: US-BAYER-200910092BCC

PATIENT
  Age: 82 Year
  Sex: Female
  Weight: 80 kg

DRUGS (7)
  1. ALEVE (CAPLET) [Suspect]
     Indication: ARTHRALGIA
     Dosage: TOTAL DAILY DOSE: 440 MG  UNIT DOSE: 220 MG
  2. ALEVE (CAPLET) [Suspect]
     Dosage: TOTAL DAILY DOSE: 440 MG  UNIT DOSE: 220 MG
  3. PROCARDIA [Concomitant]
  4. TENORMIN [Concomitant]
  5. LASIX [Concomitant]
  6. REGLAN [Concomitant]
  7. ZANTAC [Concomitant]

REACTIONS (1)
  - PROCEDURAL PAIN [None]
